FAERS Safety Report 9199743 (Version 3)
Quarter: 2013Q4

REPORT INFORMATION
  Report Type: Spontaneous
  Country: US (occurrence: None)
  Receive Date: 20130326
  Receipt Date: 20131114
  Transmission Date: 20140711
  Serious: Yes (Hospitalization, Other)
  Sender: FDA-Public Use
  Company Number: JPI-P-030598

PATIENT
  Age: 43 Year
  Sex: Female
  Weight: 52.3 kg

DRUGS (4)
  1. XYREM [Suspect]
     Indication: CATAPLEXY
     Route: 048
     Dates: start: 200312
  2. XYREM [Suspect]
     Indication: NARCOLEPSY
     Route: 048
     Dates: start: 200312
  3. ^OTC^ ALLERGY MEDICINE [Concomitant]
  4. PROGESTERONE [Concomitant]

REACTIONS (6)
  - Breast cancer female [None]
  - Breast cancer recurrent [None]
  - Mastectomy [None]
  - Menopause [None]
  - Anxiety [None]
  - Stress [None]
